FAERS Safety Report 8891760 (Version 1)
Quarter: 2012Q4

REPORT INFORMATION
  Report Type: 
  Country: US (occurrence: US)
  Receive Date: 20121107
  Receipt Date: 20121107
  Transmission Date: 20130627
  Serious: No
  Sender: FDA-Public Use
  Company Number: US-AMGEN-USASP2011056490

PATIENT
  Age: 63 Year
  Sex: Female

DRUGS (9)
  1. ENBREL [Suspect]
     Indication: PRODUCT USED FOR UNKNOWN INDICATION
     Dosage: wk50 mg, qwk
  2. OXYCONTIN [Concomitant]
     Dosage: 10 mg, UNK
  3. FIORICET [Concomitant]
  4. ATIVAN [Concomitant]
     Dosage: 1 mg, UNK
  5. GABAPENTIN [Concomitant]
     Dosage: 100 mg, UNK
  6. ESTRADIOL [Concomitant]
     Dosage: 0.025 mg, UNK
  7. NUPRIN [Concomitant]
     Dosage: 200 mg, UNK
  8. ATENOLOL [Concomitant]
     Dosage: 25 mg, UNK
  9. VERAPAMIL [Concomitant]
     Dosage: 240 mg, UNK

REACTIONS (1)
  - Pain [Unknown]
